FAERS Safety Report 13216521 (Version 4)
Quarter: 2017Q3

REPORT INFORMATION
  Report Type: Spontaneous
  Country: US (occurrence: US)
  Receive Date: 20170210
  Receipt Date: 20170802
  Transmission Date: 20171127
  Serious: No
  Sender: FDA-Public Use
  Company Number: US-TEVA-733025ACC

PATIENT
  Age: 56 Year
  Sex: Female

DRUGS (18)
  1. NEXIUM [Concomitant]
     Active Substance: ESOMEPRAZOLE MAGNESIUM
  2. BACLOFEN. [Concomitant]
     Active Substance: BACLOFEN
  3. TIZANIDINE. [Concomitant]
     Active Substance: TIZANIDINE
  4. LEVOTHYROXIN [Concomitant]
     Active Substance: LEVOTHYROXINE
  5. ONDANSETRON [Concomitant]
     Active Substance: ONDANSETRON
  6. DULOXETINE. [Concomitant]
     Active Substance: DULOXETINE
  7. CHOLESTYRAM [Concomitant]
     Active Substance: CHOLESTYRAMINE
  8. NITROFURANTOIN MAC [Concomitant]
  9. RIZATRIPTAN. [Concomitant]
     Active Substance: RIZATRIPTAN
  10. COPAXONE [Suspect]
     Active Substance: GLATIRAMER ACETATE
     Indication: MULTIPLE SCLEROSIS
     Route: 058
     Dates: start: 20151230
  11. LORAZEPAM. [Concomitant]
     Active Substance: LORAZEPAM
  12. CYMBALTA [Concomitant]
     Active Substance: DULOXETINE HYDROCHLORIDE
  13. FML OIN [Concomitant]
  14. ESTRING MIS [Concomitant]
  15. GABAPENTIN. [Concomitant]
     Active Substance: GABAPENTIN
  16. MELOXICAM. [Concomitant]
     Active Substance: MELOXICAM
  17. LEVOTHYROXIN [Concomitant]
     Active Substance: LEVOTHYROXINE
  18. DIPHEN/ATROP [Concomitant]
     Active Substance: ATROPINE SULFATE\DIPHENOXYLATE

REACTIONS (5)
  - Hypoaesthesia [Not Recovered/Not Resolved]
  - Muscle disorder [Not Recovered/Not Resolved]
  - Migraine [Unknown]
  - Sciatica [Not Recovered/Not Resolved]
  - Balance disorder [Not Recovered/Not Resolved]

NARRATIVE: CASE EVENT DATE: 20161123
